FAERS Safety Report 18095897 (Version 1)
Quarter: 2020Q3

REPORT INFORMATION
  Report Type: Spontaneous
  Country: US (occurrence: US)
  Receive Date: 20200730
  Receipt Date: 20200730
  Transmission Date: 20201103
  Serious: Yes (Other)
  Sender: FDA-Public Use
  Company Number: US-AMERICAN REGENT INC-2020001508

PATIENT
  Age: 61 Year
  Sex: Female

DRUGS (14)
  1. EPINEPHRINE INJECTION, USP (0517?1071?01) [Interacting]
     Active Substance: EPINEPHRINE
     Indication: VASOPLEGIA SYNDROME
  2. TERBUTALINE [Interacting]
     Active Substance: TERBUTALINE
     Indication: HEART RATE ABNORMAL
     Dosage: STARTED AT 2.5 MILLIGRAM
     Route: 048
  3. DOBUTAMINE [Interacting]
     Active Substance: DOBUTAMINE HYDROCHLORIDE
     Indication: CARDIOGENIC SHOCK
  4. MILRINONE [Concomitant]
     Active Substance: MILRINONE
     Indication: CARDIAC DYSFUNCTION
     Dosage: 0.2 MCG/KG/MIN
     Route: 042
  5. FENTANYL. [Concomitant]
     Active Substance: FENTANYL
     Indication: PAIN
     Dosage: 20?75 MCG/KG/HR
  6. DOBUTAMINE [Interacting]
     Active Substance: DOBUTAMINE HYDROCHLORIDE
     Indication: VASOPLEGIA SYNDROME
  7. MILRINONE [Concomitant]
     Active Substance: MILRINONE
     Dosage: 0.4 MCG/KG/MIN
     Route: 042
  8. EPINEPHRINE INJECTION, USP (0517?1071?01) [Suspect]
     Active Substance: EPINEPHRINE
     Indication: CARDIOGENIC SHOCK
     Dosage: 0.05 MCG/KG/MIN
     Route: 042
  9. DOBUTAMINE [Interacting]
     Active Substance: DOBUTAMINE HYDROCHLORIDE
     Indication: CARDIAC OUTPUT DECREASED
     Dosage: WEANED DOWN ON POST?OPERATIVE DAY 3
     Route: 042
  10. DOBUTAMINE [Interacting]
     Active Substance: DOBUTAMINE HYDROCHLORIDE
     Indication: CARDIAC INDEX DECREASED
     Dosage: INCREASED
     Route: 042
  11. TERBUTALINE [Interacting]
     Active Substance: TERBUTALINE
     Indication: CARDIAC OUTPUT DECREASED
     Dosage: INCREASED TO 5 MG, EVERY 8 HOURS
  12. TERBUTALINE [Interacting]
     Active Substance: TERBUTALINE
     Indication: HAEMODYNAMIC INSTABILITY
  13. PROPOFOL. [Concomitant]
     Active Substance: PROPOFOL
     Indication: SEDATION
     Dosage: 20?50 MCG/KG/MIN
     Route: 065
  14. DOBUTAMINE [Interacting]
     Active Substance: DOBUTAMINE HYDROCHLORIDE
     Indication: CARDIAC DYSFUNCTION
     Dosage: 6 MCG/KG/MIN (HOME THERAPY)
     Route: 042

REACTIONS (3)
  - Drug interaction [Recovered/Resolved]
  - Serotonin syndrome [Recovered/Resolved]
  - Product use in unapproved indication [Unknown]
